FAERS Safety Report 17392047 (Version 4)
Quarter: 2020Q3

REPORT INFORMATION
  Report Type: Spontaneous
  Country: BR (occurrence: BR)
  Receive Date: 20200207
  Receipt Date: 20200716
  Transmission Date: 20201102
  Serious: Yes (Death, Other)
  Sender: FDA-Public Use
  Company Number: BR-SA-2020SA029150

PATIENT

DRUGS (4)
  1. METHOTREXATE. [Concomitant]
     Active Substance: METHOTREXATE
     Indication: PSORIATIC ARTHROPATHY
     Dosage: 10 DF, QW
     Route: 048
  2. RANITIDINE HYDROCHLORIDE. [Suspect]
     Active Substance: RANITIDINE HYDROCHLORIDE
     Indication: GASTROINTESTINAL DISORDER
     Dosage: 1 DF, QD (STARTED 3 YEARS AGO)
     Route: 048
  3. ALOPURINOL [Concomitant]
     Active Substance: ALLOPURINOL
     Dosage: 1 DF, QD
     Route: 048
     Dates: start: 2019
  4. ARADOIS [Concomitant]
     Active Substance: LOSARTAN POTASSIUM
     Indication: BLOOD PRESSURE MEASUREMENT
     Dosage: 1 MORNING AND 1 AT NIGHT
     Route: 048

REACTIONS (5)
  - Gastric cancer [Unknown]
  - Haemorrhage [Recovered/Resolved]
  - Lung neoplasm malignant [Unknown]
  - Death [Fatal]
  - Psoriatic arthropathy [Unknown]

NARRATIVE: CASE EVENT DATE: 201911
